FAERS Safety Report 14685445 (Version 1)
Quarter: 2018Q1

REPORT INFORMATION
  Report Type: Spontaneous
  Country: US (occurrence: US)
  Receive Date: 20180327
  Receipt Date: 20180327
  Transmission Date: 20180509
  Serious: No
  Sender: FDA-Public Use
  Company Number: None

PATIENT
  Age: 69 Year
  Sex: Female
  Weight: 92.99 kg

DRUGS (6)
  1. VITAMIN D [Concomitant]
     Active Substance: CHOLECALCIFEROL
  2. LISINOPRIL TABLETS 20MG [Suspect]
     Active Substance: LISINOPRIL
     Indication: HYPERTENSION
     Dosage: 30 IN BOX ONCE DAILY MOUTH ORAL ?3-4 YRS  60% GONE SO FAR 10 DAYS
     Dates: end: 20180308
  3. LEVOTHYROXIN [Concomitant]
     Active Substance: LEVOTHYROXINE
  4. VIT B [Concomitant]
     Active Substance: VITAMIN B
  5. CPAP MACHINE [Concomitant]
  6. VITAMIN C [Concomitant]
     Active Substance: ASCORBIC ACID

REACTIONS (12)
  - Myalgia [None]
  - Neuropathy peripheral [None]
  - Muscle spasms [None]
  - Insomnia [None]
  - Palpitations [None]
  - Laryngitis [None]
  - Gastrooesophageal reflux disease [None]
  - Hot flush [None]
  - Neuralgia [None]
  - Hypoaesthesia [None]
  - Dysphonia [None]
  - Nausea [None]
